FAERS Safety Report 11201633 (Version 2)
Quarter: 2015Q2

REPORT INFORMATION
  Report Type: Spontaneous
  Country: IT (occurrence: IT)
  Receive Date: 20150619
  Receipt Date: 20150622
  Transmission Date: 20150821
  Serious: Yes (Other)
  Sender: FDA-Public Use
  Company Number: PHHY2015IT070890

PATIENT
  Age: 49 Year
  Sex: Female

DRUGS (1)
  1. TASIGNA [Suspect]
     Active Substance: NILOTINIB
     Indication: CHRONIC MYELOID LEUKAEMIA
     Dosage: 600 MG, QD
     Route: 048
     Dates: start: 20110101, end: 20150415

REACTIONS (4)
  - Hypercholesterolaemia [Recovering/Resolving]
  - Hypertension [Recovered/Resolved]
  - Carotid artery occlusion [Not Recovered/Not Resolved]
  - Carotid artery stenosis [Unknown]

NARRATIVE: CASE EVENT DATE: 20150415
